FAERS Safety Report 7240183-1 (Version None)
Quarter: 2011Q1

REPORT INFORMATION
  Report Type: 
  Country: None (occurrence: None)
  Receive Date: 20110113
  Receipt Date: 20101230
  Transmission Date: 20110831
  Serious: Yes (Hospitalization)
  Sender: FDA-Public Use
  Company Number: 024759

PATIENT
  Sex: Female

DRUGS (1)
  1. CIMZIA [Suspect]
     Indication: CROHN'S DISEASE
     Dosage: (200 MG 1X/2 WEEKS, LAST DOSE: 11-DEC-2010 SUBCUTANEOUS)
     Route: 058

REACTIONS (2)
  - NASOPHARYNGITIS [None]
  - THROMBOSIS [None]
